FAERS Safety Report 12406038 (Version 1)
Quarter: 2016Q2

REPORT INFORMATION
  Report Type: Spontaneous
  Country: JP (occurrence: JP)
  Receive Date: 20160526
  Receipt Date: 20160526
  Transmission Date: 20160815
  Serious: Yes (Hospitalization)
  Sender: FDA-Public Use
  Company Number: JP-FERRINGPH-2016FE02317

PATIENT

DRUGS (2)
  1. GONAX [Suspect]
     Active Substance: DEGARELIX
     Indication: PROSTATE CANCER
     Dosage: 240 MG, MONTHLY
     Route: 058
  2. CASODEX [Concomitant]
     Active Substance: BICALUTAMIDE
     Route: 048

REACTIONS (1)
  - Interstitial lung disease [Unknown]
